FAERS Safety Report 24679846 (Version 3)
Quarter: 2025Q3

REPORT INFORMATION
  Report Type: Spontaneous
  Country: US (occurrence: US)
  Receive Date: 20241129
  Receipt Date: 20250810
  Transmission Date: 20251020
  Serious: No
  Sender: ALEXION PHARMACEUTICALS
  Company Number: US-AstraZeneca-CH-00751204A

PATIENT
  Age: 66 Year
  Sex: Female

DRUGS (1)
  1. CRESTOR [Suspect]
     Active Substance: ROSUVASTATIN CALCIUM
     Indication: Blood cholesterol increased
     Dosage: 5 MILLIGRAM, QD

REACTIONS (8)
  - Brain fog [Recovering/Resolving]
  - Mood altered [Recovering/Resolving]
  - Memory impairment [Recovering/Resolving]
  - Blood cholesterol increased [Unknown]
  - Irritability [Recovering/Resolving]
  - Anxiety [Recovering/Resolving]
  - Product prescribing issue [Recovering/Resolving]
  - Intentional product misuse [Unknown]
